FAERS Safety Report 7602899-4 (Version None)
Quarter: 2011Q3

REPORT INFORMATION
  Report Type: 
  Country: None (occurrence: None)
  Receive Date: 20110712
  Receipt Date: 20110707
  Transmission Date: 20111222
  Serious: Yes (Other)
  Sender: FDA-Public Use
  Company Number: US-TEVA-289551USA

PATIENT
  Sex: Female

DRUGS (3)
  1. SOLIFENACIN SUCCINATE [Concomitant]
  2. ACETAMINOPHEN [Concomitant]
  3. COPAXONE [Suspect]
     Indication: MULTIPLE SCLEROSIS
     Route: 058
     Dates: start: 20081201

REACTIONS (1)
  - PANCREATITIS [None]
